FAERS Safety Report 4751894-1 (Version None)
Quarter: 2005Q3

REPORT INFORMATION
  Report Type: 
  Country: None (occurrence: None)
  Receive Date: 20050822
  Receipt Date: 20050513
  Transmission Date: 20060218
  Serious: No
  Sender: FDA-Public Use
  Company Number: PHEH2005US05483

PATIENT
  Age: 39 Year
  Sex: Female

DRUGS (6)
  1. ZELNORM [Suspect]
     Indication: CONSTIPATION
     Dosage: SEE IMAGE
     Route: 048
     Dates: start: 20041001, end: 20041001
  2. ZELNORM [Suspect]
     Indication: CONSTIPATION
     Dosage: SEE IMAGE
     Route: 048
     Dates: start: 20041101
  3. ZELNORM [Suspect]
     Indication: CONSTIPATION
     Dosage: SEE IMAGE
     Route: 048
     Dates: start: 20050101
  4. TAMOXIFEN (TAMOXIFEN) [Concomitant]
  5. MIRALAX [Concomitant]
  6. EFFEXOR [Concomitant]

REACTIONS (1)
  - VAGINAL HAEMORRHAGE [None]
